FAERS Safety Report 7142836-2 (Version None)
Quarter: 2010Q4

REPORT INFORMATION
  Report Type: 
  Country: None (occurrence: None)
  Receive Date: 20101207
  Receipt Date: 20101129
  Transmission Date: 20110411
  Serious: Yes (Other)
  Sender: FDA-Public Use
  Company Number: CA-PFIZER INC-2010160561

PATIENT
  Sex: Male

DRUGS (4)
  1. LYRICA [Suspect]
     Dosage: 150 MG, 3X/DAY, EVERY 8 HOURS
  2. TRAMADOL HYDROCHLORIDE [Concomitant]
     Dosage: 200 MG, SLOW DISSOLVE, 24 HOUS
  3. HYDROMORPHONE [Concomitant]
     Dosage: 9 MG, 2X/DAY AND 2MG AS NEED
  4. EXCEDRIN (MIGRAINE) [Concomitant]
     Dosage: 2-6PILLS DAILY

REACTIONS (3)
  - CONFUSIONAL STATE [None]
  - FATIGUE [None]
  - IMPAIRED WORK ABILITY [None]
